FAERS Safety Report 25097683 (Version 1)
Quarter: 2025Q1

REPORT INFORMATION
  Report Type: Spontaneous
  Country: RU (occurrence: RU)
  Receive Date: 20250320
  Receipt Date: 20250320
  Transmission Date: 20250408
  Serious: Yes (Death)
  Sender: BOEHRINGER INGELHEIM
  Company Number: RU-BoehringerIngelheim-2025-BI-016138

PATIENT
  Age: 72 Year
  Sex: Male

DRUGS (1)
  1. NINTEDANIB [Suspect]
     Active Substance: NINTEDANIB
     Indication: Rheumatoid arthritis-associated interstitial lung disease
     Dates: start: 2022

REACTIONS (3)
  - Pneumothorax spontaneous [Fatal]
  - Rheumatoid arthritis-associated interstitial lung disease [Fatal]
  - Disease progression [Fatal]

NARRATIVE: CASE EVENT DATE: 20241201
